FAERS Safety Report 8207671-2 (Version None)
Quarter: 2012Q1

REPORT INFORMATION
  Report Type: 
  Country: None (occurrence: None)
  Receive Date: 20120314
  Receipt Date: 20120307
  Transmission Date: 20120608
  Serious: Yes (Hospitalization)
  Sender: FDA-Public Use
  Company Number: DE-PFIZER INC-2012052232

PATIENT
  Age: 15 Year
  Sex: Female
  Weight: 62 kg

DRUGS (6)
  1. IBUPROFEN [Suspect]
     Dosage: 600 MG, AS NEEDED, AS NEEDED UP TO 3 TABLETS
  2. CANAKINUMAB [Concomitant]
     Dosage: 4MG/KG ONCE EVERY 4 WEEKS
     Dates: start: 20100801
  3. ETANERCEPT [Suspect]
     Dosage: UNK
     Dates: start: 20050104, end: 20060509
  4. METHOTREXATE [Concomitant]
     Dosage: 15 MG, WEEKLY
  5. PREDNISOLONE [Concomitant]
     Dosage: 10 MG, 1X/DAY
  6. FOLSAN [Concomitant]
     Dosage: 5 MG, WEEKLY

REACTIONS (1)
  - SUICIDE ATTEMPT [None]
